FAERS Safety Report 13848628 (Version 1)
Quarter: 2017Q3

REPORT INFORMATION
  Report Type: Spontaneous
  Country: US (occurrence: US)
  Receive Date: 20170809
  Receipt Date: 20170809
  Transmission Date: 20171127
  Serious: Yes (Other)
  Sender: FDA-Public Use
  Company Number: US-JNJFOC-20170728927

PATIENT
  Age: 68 Year
  Sex: Female

DRUGS (6)
  1. BENADRYL [Suspect]
     Active Substance: DIPHENHYDRAMINE HYDROCHLORIDE
     Indication: RASH PRURITIC
     Route: 065
     Dates: start: 20170504, end: 20170506
  2. OXYCODONE [Concomitant]
     Active Substance: OXYCODONE
     Indication: PAIN
     Dosage: 1 T 6 TAB PRN
     Route: 065
     Dates: start: 20170421, end: 20170422
  3. GABAPENTIN. [Concomitant]
     Active Substance: GABAPENTIN
     Indication: SURGERY
     Route: 048
     Dates: start: 20170421, end: 20170504
  4. ENOXAPARIN [Concomitant]
     Active Substance: ENOXAPARIN
     Indication: PRODUCT USED FOR UNKNOWN INDICATION
     Route: 065
     Dates: start: 20170421, end: 20170520
  5. TYLENOL [Concomitant]
     Active Substance: ACETAMINOPHEN
     Indication: PAIN
     Dosage: 2 TAB EVERY 6 HOUR
     Route: 065
     Dates: start: 20170422, end: 201705
  6. CIPROFLOXACIN. [Concomitant]
     Active Substance: CIPROFLOXACIN
     Indication: PRODUCT USED FOR UNKNOWN INDICATION
     Dosage: FOR 3 DAYS
     Route: 065
     Dates: start: 20170421, end: 20170424

REACTIONS (4)
  - Product use in unapproved indication [Unknown]
  - Off label use [Unknown]
  - Paraesthesia oral [Unknown]
  - Swollen tongue [Unknown]

NARRATIVE: CASE EVENT DATE: 20170504
